FAERS Safety Report 8203902-3 (Version None)
Quarter: 2012Q1

REPORT INFORMATION
  Report Type: 
  Country: None (occurrence: None)
  Receive Date: 20120313
  Receipt Date: 20120305
  Transmission Date: 20120608
  Serious: Yes (Life-Threatening, Hospitalization, Other)
  Sender: FDA-Public Use
  Company Number: BE-UCBSA-052671

PATIENT
  Age: 63 Year
  Sex: Female
  Weight: 75 kg

DRUGS (3)
  1. DEPAKENE [Concomitant]
     Indication: EPILEPSY
     Route: 042
     Dates: start: 20120217
  2. KEPPRA [Suspect]
     Indication: EPILEPSY
     Route: 042
  3. VIMPAT [Suspect]
     Indication: EPILEPSY
     Route: 048
     Dates: start: 20120220, end: 20120223

REACTIONS (1)
  - EPILEPSY [None]
